FAERS Safety Report 6021349-5 (Version None)
Quarter: 2008Q4

REPORT INFORMATION
  Report Type: 
  Country: None (occurrence: None)
  Receive Date: 20081229
  Receipt Date: 20081227
  Transmission Date: 20090506
  Serious: Yes (Death)
  Sender: FDA-Public Use
  Company Number: A0761720A

PATIENT
  Age: 82 Year
  Sex: Male
  Weight: 63 kg

DRUGS (4)
  1. SERETIDE [Suspect]
     Indication: BRONCHITIS
     Route: 055
     Dates: start: 20070401, end: 20080812
  2. SUSTRATE [Concomitant]
     Dates: start: 20031201, end: 20080811
  3. DIGOXIN [Concomitant]
     Dates: start: 20031201, end: 20080811
  4. ENALAPRIL MALEATE [Concomitant]
     Dosage: 10MGD PER DAY
     Dates: start: 20051201, end: 20080811

REACTIONS (1)
  - EMPHYSEMA [None]
